FAERS Safety Report 5032341-1 (Version None)
Quarter: 2006Q2

REPORT INFORMATION
  Report Type: 
  Country: None (occurrence: None)
  Receive Date: 20060621
  Receipt Date: 20060621
  Transmission Date: 20061013
  Serious: Yes (Hospitalization, Other)
  Sender: FDA-Public Use
  Company Number: None

PATIENT
  Age: 56 Year
  Sex: Male
  Weight: 81.6475 kg

DRUGS (1)
  1. FLEETS PHOSPHO SODA ONE BOTTLE [Suspect]
     Indication: COLONOSCOPY
     Dosage: ONE BOTTLE ONCE PO [SINGLE DOSE]
     Route: 048
     Dates: start: 20060608, end: 20060609

REACTIONS (5)
  - ANURIA [None]
  - BLOOD POTASSIUM INCREASED [None]
  - DIALYSIS [None]
  - RENAL FAILURE ACUTE [None]
  - RENAL TUBULAR NECROSIS [None]
